FAERS Safety Report 19995540 (Version 1)
Quarter: 2021Q4

REPORT INFORMATION
  Report Type: Spontaneous
  Country: US (occurrence: US)
  Receive Date: 20211025
  Receipt Date: 20211025
  Transmission Date: 20220303
  Serious: Yes (Hospitalization, Other)
  Sender: FDA-Public Use
  Company Number: US-ASTELLAS-2021US016791

PATIENT
  Age: 57 Year
  Sex: Male

DRUGS (50)
  1. ELOTUZUMAB [Suspect]
     Active Substance: ELOTUZUMAB
     Indication: Plasma cell myeloma
     Dosage: ELOTUZUMAB, LENALIDOMIDE, AND DEXAMETHASONE
     Route: 065
  2. LENALIDOMIDE [Suspect]
     Active Substance: LENALIDOMIDE
     Indication: Plasma cell myeloma
     Route: 065
  3. LENALIDOMIDE [Suspect]
     Active Substance: LENALIDOMIDE
     Dosage: ELOTUZUMAB, LENALIDOMIDE, AND DEXAMETHASONE
     Route: 065
  4. POMALIDOMIDE [Suspect]
     Active Substance: POMALIDOMIDE
     Indication: Plasma cell myeloma
     Dosage: CARFILZOMIB, POMALIDOMIDE, DARATUMUMAB, AND DEXAMETHASONE
     Route: 065
  5. POMALIDOMIDE [Suspect]
     Active Substance: POMALIDOMIDE
     Dosage: DARATUMUMAB, POMALIDOMIDE, AND DEXAMETHASONE
     Route: 065
  6. CARFILZOMIB [Suspect]
     Active Substance: CARFILZOMIB
     Indication: Plasma cell myeloma
     Dosage: BENDAMUSTINE, CARFILZOMIB, AND DEXAMETHASONE
     Route: 065
  7. CARFILZOMIB [Suspect]
     Active Substance: CARFILZOMIB
     Dosage: 27 MILLIGRAM/SQ. METER
     Route: 065
  8. CARFILZOMIB [Suspect]
     Active Substance: CARFILZOMIB
     Dosage: CARFILZOMIB, POMALIDOMIDE, DARATUMUMAB, AND DEXAMETHASONE
     Route: 065
  9. CARFILZOMIB [Suspect]
     Active Substance: CARFILZOMIB
     Dosage: WEEKLY, 28 DAY CYCLE
     Route: 065
  10. CARFILZOMIB [Suspect]
     Active Substance: CARFILZOMIB
     Dosage: SELINEXOR, CARFILZOMIB, AND DEXAMETHASONE
     Route: 065
  11. CARFILZOMIB [Suspect]
     Active Substance: CARFILZOMIB
     Dosage: CARFILZOMIB, PACE, AND VENETOCLAX
     Route: 065
  12. CARFILZOMIB [Suspect]
     Active Substance: CARFILZOMIB
     Dosage: CARFILZOMIB, DCEP
     Route: 065
  13. VENETOCLAX [Suspect]
     Active Substance: VENETOCLAX
     Indication: Plasma cell myeloma
     Dosage: CARFILZOMIB, PACE, AND VENETOCLAX
     Route: 065
  14. VENETOCLAX [Suspect]
     Active Substance: VENETOCLAX
     Dosage: VENETOCLAX AND AZACYTIDINE
     Route: 065
  15. BENDAMUSTINE [Suspect]
     Active Substance: BENDAMUSTINE
     Indication: Plasma cell myeloma
     Dosage: BENDAMUSTINE, CARFILZOMIB, AND DEXAMETHASONE
     Route: 065
  16. DARATUMUMAB [Suspect]
     Active Substance: DARATUMUMAB
     Indication: Plasma cell myeloma
     Dosage: DARATUMUMAB, POMALIDOMIDE, AND DEXAMETHASONE
     Route: 065
  17. DARATUMUMAB [Suspect]
     Active Substance: DARATUMUMAB
     Dosage: CARFILZOMIB, POMALIDOMIDE, DARATUMUMAB, AND DEXAMETHASONE
     Route: 065
  18. CYTARABINE [Suspect]
     Active Substance: CYTARABINE
     Indication: Bone marrow conditioning regimen
     Dosage: BEAM
     Route: 065
  19. BORTEZOMIB [Suspect]
     Active Substance: BORTEZOMIB
     Indication: Plasma cell myeloma
     Dosage: LIPOSOMAL DOXORUBICIN, DCEP (MINUS CISPLATIN), AND BORTEZOMIB
     Route: 058
  20. BORTEZOMIB [Suspect]
     Active Substance: BORTEZOMIB
     Dosage: 1.3 MILLIGRAM/SQ. METER, Q2WK
     Route: 058
  21. BORTEZOMIB [Suspect]
     Active Substance: BORTEZOMIB
     Dosage: CYCLOPHOSPHAMIDE, BORTEZOMIB, AND DEXAMETHASONE
     Route: 058
  22. TACROLIMUS [Suspect]
     Active Substance: TACROLIMUS
     Indication: Graft versus host disease in liver
     Route: 065
  23. CISPLATIN [Suspect]
     Active Substance: CISPLATIN
     Indication: Plasma cell myeloma
     Dosage: DCEP
     Route: 065
  24. CISPLATIN [Suspect]
     Active Substance: CISPLATIN
     Dosage: PACE
     Route: 065
  25. MELPHALAN [Suspect]
     Active Substance: MELPHALAN
     Indication: Bone marrow conditioning regimen
     Dosage: 200 MILLIGRAM/SQ. METER
     Route: 065
  26. MELPHALAN [Suspect]
     Active Substance: MELPHALAN
     Dosage: BEAM
     Route: 065
  27. AZACITIDINE [Suspect]
     Active Substance: AZACITIDINE
     Indication: Plasma cell myeloma
     Route: 065
  28. CYCLOPHOSPHAMIDE [Suspect]
     Active Substance: CYCLOPHOSPHAMIDE
     Indication: Plasma cell myeloma
     Dosage: DCEP (MINUS CISPLATIN),
     Route: 065
  29. CYCLOPHOSPHAMIDE [Suspect]
     Active Substance: CYCLOPHOSPHAMIDE
     Dosage: CYCLOPHOSPHAMIDE, BORTEZOMIB, AND DEXAMETHASONE
     Route: 065
  30. CYCLOPHOSPHAMIDE [Suspect]
     Active Substance: CYCLOPHOSPHAMIDE
     Dosage: DCEP
     Route: 065
  31. CYCLOPHOSPHAMIDE [Suspect]
     Active Substance: CYCLOPHOSPHAMIDE
     Dosage: PACE
     Route: 065
  32. DOXORUBICIN [Suspect]
     Active Substance: DOXORUBICIN
     Indication: Plasma cell myeloma
     Dosage: PACE
     Route: 065
  33. CARMUSTINE [Suspect]
     Active Substance: CARMUSTINE
     Indication: Bone marrow conditioning regimen
     Dosage: BEAM
     Route: 065
  34. DEXAMETHASONE [Suspect]
     Active Substance: DEXAMETHASONE
     Indication: Plasma cell myeloma
     Dosage: DCEP
     Route: 065
  35. DEXAMETHASONE [Suspect]
     Active Substance: DEXAMETHASONE
     Dosage: BENDAMUSTINE, CARFILZOMIB, AND DEXAMETHASONE
     Route: 065
  36. DEXAMETHASONE [Suspect]
     Active Substance: DEXAMETHASONE
     Dosage: ONCE WEEKLY IN 28 DAY CYCLE
     Route: 065
  37. DEXAMETHASONE [Suspect]
     Active Substance: DEXAMETHASONE
     Dosage: ELOTUZUMAB, LENALIDOMIDE, AND DEXAMETHASONE
     Route: 065
  38. DEXAMETHASONE [Suspect]
     Active Substance: DEXAMETHASONE
     Dosage: SELINEXOR, CARFILZOMIB, AND DEXAMETHASONE
     Route: 065
  39. DEXAMETHASONE [Suspect]
     Active Substance: DEXAMETHASONE
     Dosage: LENALIDOMIDE 25 MG, DEXAMETHASONE 40 MG
     Route: 065
  40. DEXAMETHASONE [Suspect]
     Active Substance: DEXAMETHASONE
     Dosage: CARFILZOMIB, POMALIDOMIDE, DARATUMUMAB, AND DEXAMETHASONE
     Route: 065
  41. DEXAMETHASONE [Suspect]
     Active Substance: DEXAMETHASONE
     Dosage: CYCLOPHOSPHAMIDE, BORTEZOMIB, AND DEXAMETHASONE
     Route: 065
  42. DEXAMETHASONE [Suspect]
     Active Substance: DEXAMETHASONE
     Dosage: DCEP (MINUS CISPLATIN)
     Route: 065
  43. DEXAMETHASONE [Suspect]
     Active Substance: DEXAMETHASONE
     Dosage: DARATUMUMAB, POMALIDOMIDE, AND DEXAMETHASONE
     Route: 065
  44. FLUDARABINE [Suspect]
     Active Substance: FLUDARABINE PHOSPHATE
     Indication: Bone marrow conditioning regimen
     Dosage: BEAM
     Route: 065
  45. ETOPOSIDE [Suspect]
     Active Substance: ETOPOSIDE
     Indication: Bone marrow conditioning regimen
     Dosage: DCEP (MINUS CISPLATIN)
     Route: 065
  46. ETOPOSIDE [Suspect]
     Active Substance: ETOPOSIDE
     Indication: Plasma cell myeloma
     Dosage: DCEP
     Route: 065
  47. ETOPOSIDE [Suspect]
     Active Substance: ETOPOSIDE
     Dosage: PACE
     Route: 065
  48. SELINEXOR [Suspect]
     Active Substance: SELINEXOR
     Indication: Plasma cell myeloma
     Dosage: 80 MILLIGRAM, TWICE WEEKLY
     Route: 065
  49. SELINEXOR [Suspect]
     Active Substance: SELINEXOR
     Dosage: 100 MILLIGRAM, PER WEEK
     Route: 065
  50. IODINE (131I) [Concomitant]
     Indication: Product used for unknown indication
     Route: 065

REACTIONS (5)
  - Clostridium difficile colitis [Unknown]
  - Hypotension [Unknown]
  - Pneumonia mycoplasmal [Recovered/Resolved]
  - Bacteraemia [Unknown]
  - Pneumonia respiratory syncytial viral [Recovered/Resolved]
